FAERS Safety Report 17833900 (Version 1)
Quarter: 2020Q2

REPORT INFORMATION
  Report Type: Report from Study
  Country: CO (occurrence: CO)
  Receive Date: 20200528
  Receipt Date: 20200528
  Transmission Date: 20200714
  Serious: Yes (Hospitalization, Other)
  Sender: FDA-Public Use
  Company Number: CO-BRISTOL-MYERS SQUIBB COMPANY-BMS-2020-032800

PATIENT
  Age: 76 Year
  Sex: Male

DRUGS (1)
  1. NIVOLUMAB [Suspect]
     Active Substance: NIVOLUMAB
     Indication: LUNG NEOPLASM MALIGNANT
     Dosage: 150 MILLIGRAM, Q2WK
     Route: 042
     Dates: start: 20200402

REACTIONS (10)
  - Pulmonary pain [Recovering/Resolving]
  - Phlebitis [Recovering/Resolving]
  - Swelling [Recovered/Resolved]
  - Pneumonia [Recovering/Resolving]
  - Weight decreased [Recovering/Resolving]
  - Delirium [Recovered/Resolved]
  - Psychiatric symptom [Recovering/Resolving]
  - Dementia [Recovering/Resolving]
  - Aggression [Recovered/Resolved]
  - Food intolerance [Recovered/Resolved]

NARRATIVE: CASE EVENT DATE: 20200410
